FAERS Safety Report 24117867 (Version 2)
Quarter: 2024Q3

REPORT INFORMATION
  Report Type: Report from Study
  Country: CA (occurrence: CA)
  Receive Date: 20240722
  Receipt Date: 20240928
  Transmission Date: 20241017
  Serious: Yes (Other)
  Sender: ABBVIE
  Company Number: CA-ABBVIE-5842737

PATIENT
  Age: 43 Year
  Sex: Male
  Weight: 75 kg

DRUGS (15)
  1. UPADACITINIB [Suspect]
     Active Substance: UPADACITINIB
     Indication: Colitis ulcerative
     Route: 048
     Dates: start: 20240522, end: 20240916
  2. UPADACITINIB [Suspect]
     Active Substance: UPADACITINIB
     Indication: Colitis ulcerative
     Route: 048
     Dates: start: 20240917
  3. PURINETHOL [Concomitant]
     Active Substance: MERCAPTOPURINE
     Indication: Colitis ulcerative
     Route: 048
     Dates: start: 201911, end: 202102
  4. PURINETHOL [Concomitant]
     Active Substance: MERCAPTOPURINE
     Indication: Colitis ulcerative
     Route: 048
     Dates: start: 202102, end: 202403
  5. PURINETHOL [Concomitant]
     Active Substance: MERCAPTOPURINE
     Indication: Colitis ulcerative
     Route: 048
     Dates: start: 202403, end: 20240705
  6. PURINETHOL [Concomitant]
     Active Substance: MERCAPTOPURINE
     Indication: Colitis ulcerative
     Route: 048
     Dates: start: 20240706, end: 20240819
  7. PURINETHOL [Concomitant]
     Active Substance: MERCAPTOPURINE
     Indication: Colitis ulcerative
     Route: 048
     Dates: start: 20240820
  8. PREDNISONE [Concomitant]
     Active Substance: PREDNISONE
     Indication: Colitis ulcerative
     Route: 048
     Dates: start: 202102, end: 202104
  9. PREDNISONE [Concomitant]
     Active Substance: PREDNISONE
     Indication: Colitis ulcerative
     Route: 048
     Dates: start: 202105, end: 202107
  10. PREDNISONE [Concomitant]
     Active Substance: PREDNISONE
     Indication: Colitis ulcerative
     Route: 048
     Dates: start: 202107, end: 20240705
  11. PREDNISONE [Concomitant]
     Active Substance: PREDNISONE
     Indication: Colitis ulcerative
     Route: 048
     Dates: start: 20240706, end: 20240819
  12. PREDNISONE [Concomitant]
     Active Substance: PREDNISONE
     Indication: Colitis ulcerative
     Route: 048
     Dates: start: 20240819
  13. PANTOPRAZOLE SODIUM [Concomitant]
     Active Substance: PANTOPRAZOLE SODIUM
     Indication: Dyspepsia
     Route: 048
     Dates: start: 202203
  14. VITAMIN D [Concomitant]
     Active Substance: VITAMIN D NOS
     Indication: Vitamin supplementation
     Route: 048
     Dates: start: 202203, end: 20240601
  15. TRAMADOL [Concomitant]
     Active Substance: TRAMADOL
     Indication: Arthralgia
     Dosage: TIME INTERVAL: AS NECESSARY
     Route: 048
     Dates: start: 202209

REACTIONS (2)
  - Cataract [Not Recovered/Not Resolved]
  - Skin mass [Not Recovered/Not Resolved]

NARRATIVE: CASE EVENT DATE: 20240601
